FAERS Safety Report 5799341-5 (Version None)
Quarter: 2008Q3

REPORT INFORMATION
  Report Type: 
  Country: None (occurrence: None)
  Receive Date: 20080702
  Receipt Date: 20080623
  Transmission Date: 20090109
  Serious: Yes (Life-Threatening)
  Sender: FDA-Public Use
  Company Number: FR-PFIZER INC-2008053277

PATIENT
  Sex: Male

DRUGS (19)
  1. TAHOR [Suspect]
     Indication: PROPHYLAXIS
     Route: 048
     Dates: start: 20080320, end: 20080402
  2. CORDARONE [Suspect]
     Indication: ATRIAL FIBRILLATION
     Route: 048
  3. LEVOCETIRIZINE [Suspect]
     Indication: HYPERSENSITIVITY
     Dosage: TEXT:1DF
     Route: 048
  4. PANTOPRAZOLE SODIUM [Suspect]
     Indication: GASTRITIS
     Route: 048
     Dates: start: 20080327, end: 20080402
  5. DEROXAT [Suspect]
     Indication: DEPRESSION
     Route: 048
  6. RAMIPRIL [Concomitant]
  7. ASPIRIN [Concomitant]
  8. BISOPROLOL FUMARATE [Concomitant]
  9. IMOVANE [Concomitant]
  10. LASIX [Concomitant]
  11. POTASSIUM CHLORIDE [Concomitant]
  12. HEXAQUINE [Concomitant]
  13. FLUTICASONE PROPIONATE [Concomitant]
  14. FORADIL [Concomitant]
  15. VENTOLIN [Concomitant]
  16. DIGOXIN [Concomitant]
  17. PREVISCAN [Concomitant]
  18. HEPARIN [Concomitant]
  19. ISOPTIN [Concomitant]

REACTIONS (1)
  - HEPATITIS FULMINANT [None]
